FAERS Safety Report 9438882 (Version 1)
Quarter: 2013Q3

REPORT INFORMATION
  Report Type: Spontaneous
  Country: CA (occurrence: CA)
  Receive Date: 20130802
  Receipt Date: 20130802
  Transmission Date: 20140515
  Serious: Yes (Life-Threatening)
  Sender: FDA-Public Use
  Company Number: CA-BRACCO-000687

PATIENT
  Age: 47 Year
  Sex: Female
  Weight: 67 kg

DRUGS (1)
  1. PROHANCE [Suspect]
     Indication: NUCLEAR MAGNETIC RESONANCE IMAGING BREAST
     Route: 042
     Dates: start: 20130730, end: 20130730

REACTIONS (2)
  - Asthma [Unknown]
  - Loss of consciousness [Unknown]
